FAERS Safety Report 21327163 (Version 1)
Quarter: 2022Q3

REPORT INFORMATION
  Report Type: Spontaneous
  Country: US (occurrence: None)
  Receive Date: 20220912
  Receipt Date: 20220912
  Transmission Date: 20221027
  Serious: Yes (Hospitalization)
  Sender: FDA-Public Use
  Company Number: None

PATIENT
  Sex: Male

DRUGS (6)
  1. LENALIDOMIDE [Suspect]
     Active Substance: LENALIDOMIDE
     Indication: Plasma cell myeloma
     Route: 048
     Dates: start: 20220715
  2. METOPROL SUC [Concomitant]
  3. PROCRIT [Concomitant]
     Active Substance: ERYTHROPOIETIN
  4. PROPAFENONE TAB [Concomitant]
  5. TERAZOSIN CAP [Concomitant]
  6. WARFARIN TAB [Concomitant]

REACTIONS (1)
  - Hospitalisation [None]
